FAERS Safety Report 6676652-2 (Version None)
Quarter: 2010Q2

REPORT INFORMATION
  Report Type: 
  Country: None (occurrence: None)
  Receive Date: 20100412
  Receipt Date: 20100408
  Transmission Date: 20101027
  Serious: Yes (Death)
  Sender: FDA-Public Use
  Company Number: PHHY2010AR21843

PATIENT
  Sex: Female

DRUGS (1)
  1. EXELON [Suspect]
     Indication: DEMENTIA ALZHEIMER'S TYPE
     Dosage: PATCH 5 CM (1 PATCH DAILY)
     Route: 062
     Dates: start: 20090801

REACTIONS (1)
  - CARDIO-RESPIRATORY ARREST [None]
